FAERS Safety Report 9287305 (Version 2)
Quarter: 2013Q3

REPORT INFORMATION
  Report Type: Spontaneous
  Country: US (occurrence: US)
  Receive Date: 20130513
  Receipt Date: 20130703
  Transmission Date: 20140515
  Serious: No
  Sender: FDA-Public Use
  Company Number: US-009507513-1305USA004637

PATIENT
  Age: 58 Year
  Sex: Female
  Weight: 62.59 kg

DRUGS (10)
  1. REBETOL [Suspect]
     Route: 048
  2. VICTRELIS [Suspect]
     Dosage: 800 MG, TID
     Route: 048
  3. PEGASYS [Suspect]
  4. ATENOLOL [Concomitant]
  5. LORAZEPAM [Concomitant]
  6. LEVOTHYROXINE SODIUM [Concomitant]
  7. TYLENOL [Concomitant]
  8. LEXAPRO [Concomitant]
  9. VITAMIN D (UNSPECIFIED) [Concomitant]
  10. CYANOCOBALAMIN [Concomitant]

REACTIONS (3)
  - Dysgeusia [Not Recovered/Not Resolved]
  - Fatigue [Not Recovered/Not Resolved]
  - Oropharyngeal pain [Unknown]
